FAERS Safety Report 7716166-1 (Version None)
Quarter: 2011Q3

REPORT INFORMATION
  Report Type: 
  Country: None (occurrence: None)
  Receive Date: 20110829
  Receipt Date: 20110817
  Transmission Date: 20111222
  Serious: Yes (Other)
  Sender: FDA-Public Use
  Company Number: JP-ELI_LILLY_AND_COMPANY-JP201108000452

PATIENT
  Age: 79 Year
  Sex: Female

DRUGS (7)
  1. CONIEL [Concomitant]
     Dosage: UNK
     Route: 048
  2. PROPYLTHIOURACIL [Concomitant]
     Dosage: 100 MG, TID
     Route: 048
  3. ZYPREXA [Suspect]
     Dosage: 2.5 MG, QD
     Route: 048
     Dates: start: 20110708, end: 20110701
  4. ZYPREXA [Suspect]
     Dosage: 2.5 MG, QD
     Route: 048
     Dates: start: 20110729, end: 20110731
  5. ZYPREXA [Suspect]
     Dosage: 5.0 MG, QD
     Route: 048
     Dates: start: 20110701, end: 20110701
  6. ZYPREXA [Suspect]
     Dosage: 7.0 MG, QD
     Route: 048
     Dates: start: 20110701, end: 20110728
  7. TASMOLIN [Concomitant]
     Dosage: UNK
     Route: 048
     Dates: start: 20110729

REACTIONS (7)
  - PYREXIA [None]
  - ALTERED STATE OF CONSCIOUSNESS [None]
  - BLOOD CREATINE PHOSPHOKINASE INCREASED [None]
  - NEUROLEPTIC MALIGNANT SYNDROME [None]
  - MUSCLE RIGIDITY [None]
  - HYPERHIDROSIS [None]
  - URINARY INCONTINENCE [None]
